FAERS Safety Report 14410183 (Version 1)
Quarter: 2018Q1

REPORT INFORMATION
  Report Type: Spontaneous
  Country: US (occurrence: US)
  Receive Date: 20180119
  Receipt Date: 20180119
  Transmission Date: 20180509
  Serious: Yes (Congenital Anomaly)
  Sender: FDA-Public Use
  Company Number: US-ENDO PHARMACEUTICALS INC-2018-013844

PATIENT
  Sex: Male

DRUGS (1)
  1. GILDESS 1/20 [Suspect]
     Active Substance: ETHINYL ESTRADIOL\NORETHINDRONE ACETATE
     Indication: PRODUCT USED FOR UNKNOWN INDICATION
     Dosage: UNK UNK, UNKNOWN
     Route: 064
     Dates: start: 2016, end: 2016

REACTIONS (3)
  - Hypoacusis [Recovered/Resolved]
  - Foetal exposure during pregnancy [Unknown]
  - Plagiocephaly [Unknown]

NARRATIVE: CASE EVENT DATE: 2016
